FAERS Safety Report 16569032 (Version 1)
Quarter: 2019Q3

REPORT INFORMATION
  Report Type: Report from Study
  Country: EG (occurrence: EG)
  Receive Date: 20190713
  Receipt Date: 20190713
  Transmission Date: 20191004
  Serious: Yes (Death, Hospitalization)
  Sender: FDA-Public Use
  Company Number: PHHY2019EG157807

PATIENT
  Age: 39 Year
  Sex: Female

DRUGS (5)
  1. KISQALI [Suspect]
     Active Substance: RIBOCICLIB
     Indication: HEPATIC CANCER
  2. FASLODEX [Concomitant]
     Active Substance: FULVESTRANT
     Indication: PRODUCT USED FOR UNKNOWN INDICATION
     Dosage: UNK UNK, QMO
     Route: 065
  3. KISQALI [Suspect]
     Active Substance: RIBOCICLIB
     Indication: BRAIN NEOPLASM MALIGNANT
  4. KISQALI [Suspect]
     Active Substance: RIBOCICLIB
     Indication: BONE CANCER
  5. KISQALI [Suspect]
     Active Substance: RIBOCICLIB
     Indication: BREAST CANCER
     Dosage: 600 MG, QD
     Route: 048
     Dates: start: 20190319

REACTIONS (6)
  - Coma [Not Recovered/Not Resolved]
  - Peripheral swelling [Fatal]
  - Abdominal distension [Fatal]
  - Hallucination [Not Recovered/Not Resolved]
  - Hepatic function abnormal [Fatal]
  - Jaundice [Fatal]

NARRATIVE: CASE EVENT DATE: 201904
